FAERS Safety Report 13469103 (Version 1)
Quarter: 2017Q2

REPORT INFORMATION
  Report Type: Spontaneous
  Country: US (occurrence: US)
  Receive Date: 20170421
  Receipt Date: 20170421
  Transmission Date: 20170830
  Serious: No
  Sender: FDA-Public Use
  Company Number: US-SHIRE-US201708790

PATIENT
  Age: 26 Year
  Sex: Female

DRUGS (3)
  1. VYVANSE [Suspect]
     Active Substance: LISDEXAMFETAMINE DIMESYLATE
     Indication: VOMITING
     Dosage: 20 MG, 1X/DAY:QD
     Route: 048
  2. VYVANSE [Suspect]
     Active Substance: LISDEXAMFETAMINE DIMESYLATE
     Indication: BINGE EATING
     Dosage: 20 MG, OTHER (ON AND OFF FOR ONE YEAR)
     Route: 048
  3. VYVANSE [Suspect]
     Active Substance: LISDEXAMFETAMINE DIMESYLATE
     Indication: WEIGHT DECREASED
     Dosage: 40 MG, 1X/DAY:QD
     Route: 048
     Dates: start: 201703, end: 20170414

REACTIONS (5)
  - Fatigue [Unknown]
  - Abnormal behaviour [Unknown]
  - Aggression [Unknown]
  - Anxiety [Unknown]
  - Inappropriate schedule of drug administration [Recovered/Resolved]

NARRATIVE: CASE EVENT DATE: 20170415
